FAERS Safety Report 26174181 (Version 1)
Quarter: 2025Q4

REPORT INFORMATION
  Report Type: Report from Study
  Country: TH (occurrence: TH)
  Receive Date: 20251218
  Receipt Date: 20251218
  Transmission Date: 20260118
  Serious: Yes (Other)
  Sender: HELSINN HEALTHCARE
  Company Number: TH-HBP-2025TH032666

PATIENT
  Age: 81 Year

DRUGS (1)
  1. AKYNZEO (NETUPITANT\PALONOSETRON HYDROCHLORIDE) [Suspect]
     Active Substance: NETUPITANT\PALONOSETRON HYDROCHLORIDE
     Indication: Prophylaxis of nausea and vomiting
     Dosage: UNK, UNKNOWN
     Route: 048
     Dates: start: 20251112, end: 20251124

REACTIONS (2)
  - Cholecystitis [Unknown]
  - Liver function test abnormal [Unknown]

NARRATIVE: CASE EVENT DATE: 20251209
